FAERS Safety Report 10803757 (Version 2)
Quarter: 2015Q1

REPORT INFORMATION
  Report Type: Spontaneous
  Country: US (occurrence: US)
  Receive Date: 20150217
  Receipt Date: 20150317
  Transmission Date: 20150721
  Serious: No
  Sender: FDA-Public Use
  Company Number: US-SHIRE-US201501232

PATIENT
  Age: 15 Year
  Sex: Male
  Weight: 83.45 kg

DRUGS (11)
  1. VYVANSE [Suspect]
     Active Substance: LISDEXAMFETAMINE DIMESYLATE
     Dosage: 40 MG, 1X/DAY:QD
     Route: 048
     Dates: start: 201501, end: 201501
  2. LOSARTAN [Concomitant]
     Active Substance: LOSARTAN
     Indication: FOCAL SEGMENTAL GLOMERULOSCLEROSIS
     Dosage: 50 MG, 1X/DAY:QD
     Route: 048
  3. FISH OIL [Concomitant]
     Active Substance: FISH OIL
     Indication: FOCAL SEGMENTAL GLOMERULOSCLEROSIS
     Dosage: 1000 MG, 2X/DAY:BID
     Route: 048
     Dates: start: 2012
  4. VITAMIN D3 [Concomitant]
     Active Substance: CHOLECALCIFEROL
     Dosage: 10000 IU, OTHER (MON, WED, FRI)
     Route: 048
     Dates: start: 2013
  5. MULTIVITAMIN                       /07504101/ [Concomitant]
     Active Substance: VITAMINS
     Indication: SUPPLEMENTATION THERAPY
     Dosage: UNK, 1X/DAY:QD
     Route: 048
  6. VYVANSE [Suspect]
     Active Substance: LISDEXAMFETAMINE DIMESYLATE
     Indication: ATTENTION DEFICIT/HYPERACTIVITY DISORDER
     Dosage: UNK (HALF OF A 50 MG CAPSULE), 1X/DAY:QD (IN 8 OZ OF WATER)
     Route: 048
     Dates: start: 201501, end: 201501
  7. VYVANSE [Suspect]
     Active Substance: LISDEXAMFETAMINE DIMESYLATE
     Dosage: 30 MG, 1X/DAY:QD
     Route: 048
     Dates: start: 201501
  8. VYVANSE [Suspect]
     Active Substance: LISDEXAMFETAMINE DIMESYLATE
     Dosage: 50 MG, 1X/DAY:QD
     Route: 048
     Dates: start: 201501, end: 201501
  9. VITAMIN D3 [Concomitant]
     Active Substance: CHOLECALCIFEROL
     Indication: FOCAL SEGMENTAL GLOMERULOSCLEROSIS
     Dosage: 5000 IU, OTHER (TUES., THURS., SAT., + SUN.)
     Route: 048
     Dates: start: 2013
  10. ENALAPRIL [Concomitant]
     Active Substance: ENALAPRIL
     Indication: FOCAL SEGMENTAL GLOMERULOSCLEROSIS
     Dosage: 5 MG, 2X/DAY:BID
     Route: 048
     Dates: start: 201412
  11. POLY-IRON [Concomitant]
     Indication: IRON DEFICIENCY
     Dosage: 150 MG, 1X/DAY:QD
     Route: 048
     Dates: start: 201412

REACTIONS (12)
  - Drug ineffective [Recovered/Resolved]
  - Drug effect increased [Recovered/Resolved]
  - Incorrect dose administered [Recovered/Resolved]
  - Tachycardia [Unknown]
  - Abnormal loss of weight [Recovered/Resolved]
  - Hypotension [Recovered/Resolved]
  - Nervousness [Not Recovered/Not Resolved]
  - Fatigue [Not Recovered/Not Resolved]
  - Agitation [Not Recovered/Not Resolved]
  - Crying [Recovered/Resolved]
  - Aggression [Not Recovered/Not Resolved]
  - Dizziness postural [Not Recovered/Not Resolved]

NARRATIVE: CASE EVENT DATE: 201501
